FAERS Safety Report 13047516 (Version 1)
Quarter: 2016Q4

REPORT INFORMATION
  Report Type: Spontaneous
  Country: CH (occurrence: CH)
  Receive Date: 20161220
  Receipt Date: 20161220
  Transmission Date: 20170207
  Serious: Yes (Hospitalization)
  Sender: FDA-Public Use
  Company Number: CH-ASTRAZENECA-2016SF32183

PATIENT
  Age: 46 Year
  Sex: Male

DRUGS (4)
  1. PARONEX [Suspect]
     Active Substance: PAROXETINE HYDROCHLORIDE
     Route: 048
  2. SEROQUEL [Suspect]
     Active Substance: QUETIAPINE FUMARATE
     Route: 048
     Dates: end: 201609
  3. TRANXILIUM [Concomitant]
     Active Substance: CLORAZEPATE DIPOTASSIUM
  4. PARONEX [Suspect]
     Active Substance: PAROXETINE HYDROCHLORIDE
     Route: 048

REACTIONS (1)
  - Atrioventricular block second degree [Not Recovered/Not Resolved]

NARRATIVE: CASE EVENT DATE: 201609
